FAERS Safety Report 11220423 (Version 1)
Quarter: 2015Q2

REPORT INFORMATION
  Report Type: Spontaneous
  Country: US (occurrence: None)
  Receive Date: 20150625
  Receipt Date: 20150625
  Transmission Date: 20150821
  Serious: No
  Sender: FDA-Public Use
  Company Number: None

PATIENT
  Age: 63 Year
  Sex: Male
  Weight: 134.5 kg

DRUGS (3)
  1. INTRON A [Suspect]
     Active Substance: INTERFERON ALFA-2B
     Dosage: 119 MU
     Dates: start: 20130906
  2. INTRON A [Suspect]
     Active Substance: INTERFERON ALFA-2B
     Indication: PRESYNCOPE
     Dosage: 119 MU
     Dates: start: 20130906
  3. INTRON A [Suspect]
     Active Substance: INTERFERON ALFA-2B
     Indication: DEHYDRATION
     Dosage: 119 MU
     Dates: start: 20130906

REACTIONS (10)
  - Hypotension [None]
  - Fatigue [None]
  - Presyncope [None]
  - Dizziness [None]
  - Orthostatic intolerance [None]
  - Dysuria [None]
  - Nausea [None]
  - Hypophosphataemia [None]
  - Dehydration [None]
  - Malaise [None]

NARRATIVE: CASE EVENT DATE: 20130908
